FAERS Safety Report 4480517-4 (Version None)
Quarter: 2004Q4

REPORT INFORMATION
  Report Type: 
  Country: None (occurrence: None)
  Receive Date: 20041019
  Receipt Date: 20041007
  Transmission Date: 20050328
  Serious: Yes (Hospitalization)
  Sender: FDA-Public Use
  Company Number: 200412853GDS

PATIENT
  Age: 84 Year
  Sex: Female

DRUGS (8)
  1. ASPIRIN [Suspect]
     Indication: PROPHYLAXIS
     Dosage: 100 MG, QD, ORAL
     Route: 048
     Dates: start: 20040101, end: 20041006
  2. ENOXAPARIN SODIUM [Suspect]
     Indication: PROPHYLAXIS
     Dosage: 2000 IU, QD, SUBCUTANEOUS
     Route: 058
     Dates: start: 20041002, end: 20041004
  3. TICLID [Suspect]
     Indication: PROPHYLAXIS
     Dosage: 250 MG, QD, ORAL
     Route: 048
     Dates: start: 20040101, end: 20041002
  4. EUTIROX [Concomitant]
  5. CEFAZOLIN [Concomitant]
  6. ENAPREN [Concomitant]
  7. DILATREND [Concomitant]
  8. ALDACTONE [Concomitant]

REACTIONS (1)
  - THROMBOCYTOPENIA [None]
